FAERS Safety Report 6645067-5 (Version None)
Quarter: 2010Q1

REPORT INFORMATION
  Report Type: 
  Country: None (occurrence: None)
  Receive Date: 20100317
  Receipt Date: 20100309
  Transmission Date: 20100710
  Serious: Yes (Other)
  Sender: FDA-Public Use
  Company Number: 2010SP014894

PATIENT
  Age: 15 Year
  Sex: Male

DRUGS (2)
  1. CORICIDIN HBP CHEST CONGESTION + COUGH (DEXTROMETHORPHAN HYDROBROMIDE/ [Suspect]
     Indication: DRUG USE FOR UNKNOWN INDICATION
     Dosage: PO
     Route: 048
     Dates: start: 20100308
  2. ROBITUSSIN COUGH AND COLD [Suspect]
     Indication: DRUG USE FOR UNKNOWN INDICATION
     Dosage: PO
     Route: 048

REACTIONS (2)
  - HALLUCINATION [None]
  - MULTIPLE DRUG OVERDOSE [None]
